FAERS Safety Report 14024445 (Version 1)
Quarter: 2017Q3

REPORT INFORMATION
  Report Type: Other
  Country: SG (occurrence: SG)
  Receive Date: 20170929
  Receipt Date: 20170929
  Transmission Date: 20171128
  Serious: Yes (Death, Life-Threatening)
  Sender: FDA-Public Use
  Company Number: SG-RARE DISEASE THERAPEUTICS, INC.-2028229

PATIENT
  Age: 17 Year
  Sex: Male

DRUGS (2)
  1. PURIXAN [Suspect]
     Active Substance: MERCAPTOPURINE
     Indication: ACUTE LYMPHOCYTIC LEUKAEMIA
     Route: 048
  2. METHOTREXATE. [Suspect]
     Active Substance: METHOTREXATE
     Route: 048

REACTIONS (6)
  - Sepsis [Fatal]
  - Organising pneumonia [Fatal]
  - Human rhinovirus test positive [Recovered/Resolved]
  - Histiocytosis haematophagic [Fatal]
  - Multiple organ dysfunction syndrome [Fatal]
  - Measles [Fatal]
